FAERS Safety Report 8730537 (Version 3)
Quarter: 2013Q3

REPORT INFORMATION
  Report Type: Spontaneous
  Country: US (occurrence: US)
  Receive Date: 20120817
  Receipt Date: 20130912
  Transmission Date: 20140515
  Serious: No
  Sender: FDA-Public Use
  Company Number: US-ASTRAZENECA-2012SE49808

PATIENT
  Age: 73 Year
  Sex: Female
  Weight: 61.7 kg

DRUGS (7)
  1. SEROQUEL [Suspect]
     Indication: BIPOLAR DISORDER
     Route: 048
  2. SEROQUEL [Suspect]
     Indication: BIPOLAR DISORDER
     Route: 048
     Dates: start: 2010, end: 20120531
  3. SEROQUEL [Suspect]
     Indication: BIPOLAR DISORDER
     Dosage: GENERIC FORM, 400 MG HS
     Route: 048
     Dates: start: 20120601, end: 20120602
  4. SEROQUEL [Suspect]
     Indication: BIPOLAR DISORDER
     Route: 048
     Dates: start: 20120603
  5. SEROQUEL [Suspect]
     Indication: BIPOLAR DISORDER
     Dosage: GENERIC FORM, DAILY
     Route: 048
     Dates: start: 20130731
  6. ALPRAZOLAM [Concomitant]
     Indication: PANIC ATTACK
     Route: 048
  7. OTHER MEDICATIONS [Concomitant]
     Indication: MENTAL DISORDER

REACTIONS (12)
  - Nausea [Not Recovered/Not Resolved]
  - Activities of daily living impaired [Not Recovered/Not Resolved]
  - Malaise [Unknown]
  - Stress [Not Recovered/Not Resolved]
  - Depression [Not Recovered/Not Resolved]
  - Panic attack [Not Recovered/Not Resolved]
  - Fear [Not Recovered/Not Resolved]
  - Adverse event [Not Recovered/Not Resolved]
  - Adverse drug reaction [Unknown]
  - Somnolence [Not Recovered/Not Resolved]
  - Sluggishness [Recovered/Resolved]
  - Drug dose omission [Not Recovered/Not Resolved]
